FAERS Safety Report 6964247-2 (Version None)
Quarter: 2010Q3

REPORT INFORMATION
  Report Type: 
  Country: None (occurrence: None)
  Receive Date: 20100903
  Receipt Date: 20100825
  Transmission Date: 20110219
  Serious: No
  Sender: FDA-Public Use
  Company Number: US-BIOGENIDEC-2010BI017790

PATIENT
  Age: 35 Year
  Sex: Female

DRUGS (1)
  1. TYSABRI [Suspect]
     Indication: MULTIPLE SCLEROSIS
     Route: 042
     Dates: start: 20100423, end: 20100608

REACTIONS (6)
  - DIFFERENTIAL WHITE BLOOD CELL COUNT ABNORMAL [None]
  - MEAN CELL HAEMOGLOBIN INCREASED [None]
  - MEAN PLATELET VOLUME ABNORMAL [None]
  - RED CELL DISTRIBUTION WIDTH ABNORMAL [None]
  - URINARY TRACT INFECTION [None]
  - WHITE BLOOD CELL COUNT INCREASED [None]
